FAERS Safety Report 17694361 (Version 1)
Quarter: 2020Q2

REPORT INFORMATION
  Report Type: Spontaneous
  Country: US (occurrence: US)
  Receive Date: 20200422
  Receipt Date: 20200422
  Transmission Date: 20200714
  Serious: Yes (Other)
  Sender: FDA-Public Use
  Company Number: US-JNJFOC-20200418379

PATIENT
  Age: 81 Year
  Sex: Female
  Weight: 61.29 kg

DRUGS (9)
  1. ALBUTEROL                          /00139501/ [Concomitant]
     Active Substance: ALBUTEROL
  2. MUCINEX [Concomitant]
     Active Substance: GUAIFENESIN
  3. LAXATIVE [Concomitant]
     Active Substance: UNSPECIFIED INGREDIENT
  4. ATROVENT [Concomitant]
     Active Substance: IPRATROPIUM BROMIDE
  5. SYMBICORT [Concomitant]
     Active Substance: BUDESONIDE\FORMOTEROL FUMARATE DIHYDRATE
  6. XARELTO [Suspect]
     Active Substance: RIVAROXABAN
     Indication: CEREBROVASCULAR ACCIDENT PROPHYLAXIS
  7. XARELTO [Suspect]
     Active Substance: RIVAROXABAN
     Indication: ATRIAL FIBRILLATION
     Route: 048
  8. CETIRIZINE [Concomitant]
     Active Substance: CETIRIZINE HYDROCHLORIDE
  9. PREDNISONE. [Concomitant]
     Active Substance: PREDNISONE

REACTIONS (5)
  - Insomnia [Unknown]
  - Fatigue [Unknown]
  - Angina pectoris [Not Recovered/Not Resolved]
  - Cough [Unknown]
  - Headache [Unknown]
